FAERS Safety Report 8286836-8 (Version None)
Quarter: 2012Q2

REPORT INFORMATION
  Report Type: 
  Country: None (occurrence: None)
  Receive Date: 20120416
  Receipt Date: 20120403
  Transmission Date: 20120825
  Serious: Yes (Other)
  Sender: FDA-Public Use
  Company Number: GB-ELI_LILLY_AND_COMPANY-GB201202007817

PATIENT
  Age: 30 Year
  Sex: Male
  Weight: 76.19 kg

DRUGS (3)
  1. WARFARIN SODIUM [Concomitant]
  2. ZYPREXA [Suspect]
     Indication: BIPOLAR DISORDER
     Dosage: 100 MG, QD
     Dates: start: 19980101
  3. VALPROATE SODIUM [Concomitant]
     Dosage: 1000 MG, QD

REACTIONS (2)
  - OVERDOSE [None]
  - DEEP VEIN THROMBOSIS [None]
